FAERS Safety Report 18051017 (Version 1)
Quarter: 2020Q3

REPORT INFORMATION
  Report Type: Spontaneous
  Country: US (occurrence: US)
  Receive Date: 20200721
  Receipt Date: 20200721
  Transmission Date: 20201103
  Serious: No
  Sender: FDA-Public Use
  Company Number: US-ASTRAZENECA-2020SE89861

PATIENT
  Sex: Male

DRUGS (1)
  1. SYMBICORT [Suspect]
     Active Substance: BUDESONIDE\FORMOTEROL FUMARATE DIHYDRATE
     Dosage: 80 OF 4.5 MCG AS REQUIRED UP TO THREE TIMES A DAY
     Route: 055

REACTIONS (4)
  - Product prescribing error [Not Recovered/Not Resolved]
  - Device delivery system issue [Not Recovered/Not Resolved]
  - Intentional device misuse [Unknown]
  - Wheezing [Unknown]
